FAERS Safety Report 4917628-2 (Version None)
Quarter: 2006Q1

REPORT INFORMATION
  Report Type: 
  Country: None (occurrence: None)
  Receive Date: 20060215
  Receipt Date: 20060125
  Transmission Date: 20060701
  Serious: Yes (Hospitalization)
  Sender: FDA-Public Use
  Company Number: C06-009

PATIENT
  Age: 62 Year
  Sex: Male
  Weight: 58.9676 kg

DRUGS (1)
  1. DIGOXIN [Suspect]
     Indication: ATRIAL FIBRILLATION
     Dosage: 1 TABLET A DAY

REACTIONS (2)
  - ATRIAL FIBRILLATION [None]
  - CARDIOACTIVE DRUG LEVEL DECREASED [None]
